FAERS Safety Report 7360782-6 (Version None)
Quarter: 2011Q1

REPORT INFORMATION
  Report Type: 
  Country: None (occurrence: None)
  Receive Date: 20110318
  Receipt Date: 20110310
  Transmission Date: 20110831
  Serious: Yes (Other)
  Sender: FDA-Public Use
  Company Number: CA-GENZYME-CERZ-1001418

PATIENT

DRUGS (5)
  1. RANITIDINE [Concomitant]
     Indication: GASTROOESOPHAGEAL REFLUX DISEASE
     Dosage: 150 MG, BID
     Dates: start: 20090101
  2. CEREZYME [Suspect]
     Indication: GAUCHER'S DISEASE
     Dosage: 53 U/KG, Q2W
     Route: 042
     Dates: start: 20100826
  3. CEREZYME [Suspect]
     Dosage: 2000 U, Q2W
     Route: 042
     Dates: start: 20090801, end: 20100812
  4. CEREZYME [Suspect]
     Dosage: 4000 U, Q2W
     Route: 042
     Dates: start: 20040101, end: 20090801
  5. VENTOLIN [Concomitant]
     Indication: PRODUCT USED FOR UNKNOWN INDICATION
     Dosage: UNK
     Dates: start: 20090101

REACTIONS (3)
  - TENDONITIS [None]
  - OSTEONECROSIS [None]
  - ARTHRALGIA [None]
